FAERS Safety Report 16978650 (Version 17)
Quarter: 2022Q2

REPORT INFORMATION
  Report Type: Report from Study
  Country: CA (occurrence: CA)
  Receive Date: 20191031
  Receipt Date: 20220510
  Transmission Date: 20220720
  Serious: Yes (Other)
  Sender: FDA-Public Use
  Company Number: CA-SA-2019SA044025

PATIENT
  Age: 58 Year
  Sex: Female
  Weight: 62 kg

DRUGS (7)
  1. AGALSIDASE BETA [Suspect]
     Active Substance: AGALSIDASE BETA
     Indication: Fabry^s disease
     Dosage: 120 MG, QOW
     Route: 041
     Dates: start: 20100203
  2. AGALSIDASE BETA [Suspect]
     Active Substance: AGALSIDASE BETA
     Dosage: 120 MG, QOW
     Route: 041
     Dates: start: 20100302
  3. RIVAROXABAN [Concomitant]
     Active Substance: RIVAROXABAN
     Dosage: UNK
     Route: 065
  4. RIVAROXABAN [Concomitant]
     Active Substance: RIVAROXABAN
  5. TYLENOL [Concomitant]
     Active Substance: ACETAMINOPHEN
     Indication: Back pain
     Dosage: UNK
     Route: 065
  6. TYLENOL WITH CODEINE [Concomitant]
     Active Substance: ACETAMINOPHEN\CODEINE PHOSPHATE
     Indication: Back pain
     Dosage: UNK
  7. TYLENOL [Concomitant]
     Active Substance: ACETAMINOPHEN
     Indication: Back pain

REACTIONS (26)
  - Atrial fibrillation [Not Recovered/Not Resolved]
  - Heart sounds abnormal [Not Recovered/Not Resolved]
  - Radial pulse abnormal [Not Recovered/Not Resolved]
  - Mental impairment [Unknown]
  - Presyncope [Recovered/Resolved]
  - Visual impairment [Recovered/Resolved]
  - Heat stroke [Unknown]
  - Upper-airway cough syndrome [Not Recovered/Not Resolved]
  - Productive cough [Not Recovered/Not Resolved]
  - Exposure to SARS-CoV-2 [Unknown]
  - Sneezing [Not Recovered/Not Resolved]
  - Nasal discomfort [Not Recovered/Not Resolved]
  - Throat irritation [Not Recovered/Not Resolved]
  - Vertigo [Unknown]
  - Heart rate irregular [Not Recovered/Not Resolved]
  - Rhinorrhoea [Not Recovered/Not Resolved]
  - Diarrhoea [Recovered/Resolved]
  - Nausea [Recovered/Resolved]
  - Abdominal pain [Recovered/Resolved]
  - Blood pressure decreased [Unknown]
  - Vomiting [Recovered/Resolved]
  - Blood pressure systolic increased [Not Recovered/Not Resolved]
  - Pain [Unknown]
  - Fatigue [Not Recovered/Not Resolved]
  - Dizziness [Unknown]
  - Cough [Not Recovered/Not Resolved]

NARRATIVE: CASE EVENT DATE: 20160901
